FAERS Safety Report 6930709-7 (Version None)
Quarter: 2010Q3

REPORT INFORMATION
  Report Type: 
  Country: None (occurrence: None)
  Receive Date: 20100810
  Receipt Date: 20090802
  Transmission Date: 20110219
  Serious: Yes (Other)
  Sender: FDA-Public Use
  Company Number: 2009229450

PATIENT
  Sex: Male

DRUGS (2)
  1. FLAGYL [Suspect]
     Indication: GASTROINTESTINAL INFECTION
     Dosage: 500 MG, 3X/ DAY
     Dates: end: 20090601
  2. ALL OTHER THERAPEUTIC PRODUCTS [Concomitant]

REACTIONS (1)
  - NEUROPATHY PERIPHERAL [None]
